FAERS Safety Report 14450544 (Version 2)
Quarter: 2018Q1

REPORT INFORMATION
  Report Type: Spontaneous
  Country: US (occurrence: US)
  Receive Date: 20180129
  Receipt Date: 20180216
  Transmission Date: 20180509
  Serious: Yes (Life-Threatening, Hospitalization, Other)
  Sender: FDA-Public Use
  Company Number: US-UNITED THERAPEUTICS-UNT-2017-018164

PATIENT
  Age: 52 Year
  Sex: Female
  Weight: 125.62 kg

DRUGS (6)
  1. SILDENAFIL. [Concomitant]
     Active Substance: SILDENAFIL
     Indication: PRODUCT USED FOR UNKNOWN INDICATION
     Route: 065
  2. METOLAZONE. [Concomitant]
     Active Substance: METOLAZONE
     Indication: PRODUCT USED FOR UNKNOWN INDICATION
     Route: 065
  3. REMODULIN [Suspect]
     Active Substance: TREPROSTINIL
     Indication: PULMONARY ARTERIAL HYPERTENSION
     Dosage: 0.035 ?G/KG, CONTINUING
     Route: 041
     Dates: start: 20161101, end: 20180210
  4. BUMEX [Concomitant]
     Active Substance: BUMETANIDE
     Indication: PRODUCT USED FOR UNKNOWN INDICATION
     Route: 065
  5. WARFARIN [Suspect]
     Active Substance: WARFARIN
     Indication: PRODUCT USED FOR UNKNOWN INDICATION
     Dosage: UNK
     Route: 065
  6. REMODULIN [Suspect]
     Active Substance: TREPROSTINIL
     Dosage: UNK
     Route: 041

REACTIONS (7)
  - Malaise [Recovered/Resolved]
  - Injection site swelling [Unknown]
  - Injection site haemorrhage [Unknown]
  - Injection site erythema [Unknown]
  - Injection site pain [Unknown]
  - Sepsis [Unknown]
  - Injection site discharge [Unknown]

NARRATIVE: CASE EVENT DATE: 20171223
